FAERS Safety Report 6793261-5 (Version None)
Quarter: 2010Q2

REPORT INFORMATION
  Report Type: 
  Country: None (occurrence: None)
  Receive Date: 20100624
  Receipt Date: 20091130
  Transmission Date: 20101027
  Serious: Yes (Other)
  Sender: FDA-Public Use
  Company Number: US-MYLANLABS-2009S1017522

PATIENT
  Age: 47 Year
  Sex: Female
  Weight: 67.13 kg

DRUGS (24)
  1. CLOZAPINE [Suspect]
     Indication: DELUSION
     Route: 048
     Dates: start: 20090121, end: 20090719
  2. CLOZAPINE [Suspect]
     Indication: HALLUCINATION
     Route: 048
     Dates: start: 20090121, end: 20090719
  3. CLOZAPINE [Suspect]
     Indication: SCHIZOAFFECTIVE DISORDER
     Route: 048
     Dates: start: 20090121, end: 20090719
  4. CLOZAPINE [Suspect]
     Indication: PSYCHOTIC DISORDER
     Route: 048
     Dates: start: 20090121, end: 20090719
  5. CLOZAPINE [Suspect]
     Route: 048
     Dates: start: 20090721
  6. CLOZAPINE [Suspect]
     Route: 048
     Dates: start: 20090721
  7. CLOZAPINE [Suspect]
     Route: 048
     Dates: start: 20090721
  8. CLOZAPINE [Suspect]
     Route: 048
     Dates: start: 20090721
  9. CLOZAPINE [Suspect]
     Route: 048
     Dates: start: 20090721
  10. CLOZAPINE [Suspect]
     Route: 048
     Dates: start: 20090721
  11. CLOZAPINE [Suspect]
     Route: 048
     Dates: start: 20090721
  12. CLOZAPINE [Suspect]
     Route: 048
     Dates: start: 20090721
  13. GEODON [Concomitant]
     Route: 048
  14. DEPAKOTE ER [Concomitant]
     Route: 048
  15. TEGRETOL [Concomitant]
     Dosage: 200MG QAM AND 400 MG QHS
     Dates: start: 20090401
  16. SYNTHROID [Concomitant]
     Indication: HYPOTHYROIDISM
     Route: 048
  17. DETROL LA [Concomitant]
  18. ASPIRIN [Concomitant]
  19. COLACE [Concomitant]
  20. MIRALAX [Concomitant]
  21. ADVAIR DISKUS 100/50 [Concomitant]
     Indication: ASTHMA
  22. PRILOSEC [Concomitant]
     Indication: GASTROOESOPHAGEAL REFLUX DISEASE
  23. VITAMIN C [Concomitant]
  24. SIMETHICONE [Concomitant]

REACTIONS (1)
  - GRANULOCYTOPENIA [None]
